FAERS Safety Report 6743408-1 (Version None)
Quarter: 2010Q2

REPORT INFORMATION
  Report Type: 
  Country: None (occurrence: None)
  Receive Date: 20100527
  Receipt Date: 20100513
  Transmission Date: 20101027
  Serious: Yes (Other)
  Sender: FDA-Public Use
  Company Number: FR-ELI_LILLY_AND_COMPANY-FR201005004006

PATIENT
  Age: 80 Year
  Sex: Female

DRUGS (3)
  1. FORTEO [Suspect]
     Indication: OSTEOPOROSIS
     Dosage: 20 UG, DAILY (1/D)
     Route: 065
     Dates: start: 20100130
  2. BUMEX [Concomitant]
     Dosage: 5 MG, UNKNOWN
     Route: 065
  3. PROCORALAN [Concomitant]
     Dosage: 5 MG, UNKNOWN
     Route: 065

REACTIONS (1)
  - OEDEMA DUE TO CARDIAC DISEASE [None]
